FAERS Safety Report 8770930 (Version 1)
Quarter: 2012Q4

REPORT INFORMATION
  Report Type: 
  Country: CN (occurrence: CN)
  Receive Date: 20120906
  Receipt Date: 20120906
  Transmission Date: 20130627
  Serious: Yes (Other)
  Sender: FDA-Public Use
  Company Number: CN-BAYER-2012-091778

PATIENT
  Age: 72 Year
  Sex: Male

DRUGS (8)
  1. AVELOX [Suspect]
     Indication: INFECTION
     Dosage: 1 DF, QD
     Route: 048
     Dates: start: 20120826, end: 20120831
  2. AVELOX [Suspect]
     Indication: LYMPHADENOPATHY
  3. FOSINOPRIL SODIUM [Concomitant]
  4. ATORVASTATIN CALCIUM [Concomitant]
  5. BISOPROLOL [Concomitant]
  6. CLOPIDOGREL [Concomitant]
     Dosage: UNK
  7. ANTIBIOTICS [Concomitant]
     Indication: INFECTION
  8. ANTIBIOTICS [Concomitant]
     Indication: LYMPHADENOPATHY

REACTIONS (5)
  - Back pain [Recovering/Resolving]
  - Chromaturia [None]
  - Chromaturia [None]
  - Abasia [None]
  - Movement disorder [Recovered/Resolved]
